FAERS Safety Report 24914049 (Version 1)
Quarter: 2025Q1

REPORT INFORMATION
  Report Type: Spontaneous
  Country: US (occurrence: US)
  Receive Date: 20250202
  Receipt Date: 20250202
  Transmission Date: 20250409
  Serious: No
  Sender: BIOGEN
  Company Number: US-BIOGEN-2025BI01298155

PATIENT
  Age: 35 Year
  Sex: Female

DRUGS (2)
  1. SKYCLARYS [Suspect]
     Active Substance: OMAVELOXOLONE
     Indication: Friedreich^s ataxia
     Route: 050
     Dates: start: 20250115
  2. SKYCLARYS [Suspect]
     Active Substance: OMAVELOXOLONE
     Route: 050
     Dates: start: 20250115

REACTIONS (4)
  - Vision blurred [Unknown]
  - Nausea [Recovered/Resolved]
  - Vomiting [Recovered/Resolved]
  - Headache [Unknown]

NARRATIVE: CASE EVENT DATE: 20250101
